FAERS Safety Report 11590089 (Version 1)
Quarter: 2015Q4

REPORT INFORMATION
  Report Type: Spontaneous
  Country: US (occurrence: US)
  Receive Date: 20151002
  Receipt Date: 20151002
  Transmission Date: 20160304
  Serious: No
  Sender: FDA-Public Use
  Company Number: US-009507513-1510USA000498

PATIENT

DRUGS (5)
  1. PEGINTERFERON ALFA-2A [Suspect]
     Active Substance: PEGINTERFERON ALFA-2A
     Indication: CHRONIC HEPATITIS C
     Dosage: 180 MICROGRAM, QW
     Route: 058
  2. VICTRELIS [Suspect]
     Active Substance: BOCEPREVIR
     Indication: CHRONIC HEPATITIS C
     Dosage: 2400 MG *800 MG, 3 IN 1 D(
     Route: 048
  3. TELAPREVIR [Suspect]
     Active Substance: TELAPREVIR
     Indication: CHRONIC HEPATITIS C
     Dosage: 2250 MG (750 MG, FOR 12 WEEKS)
     Route: 065
  4. REBETOL [Suspect]
     Active Substance: RIBAVIRIN
     Indication: CHRONIC HEPATITIS C
     Dosage: THE DOSE OF RIBAVIRIN WAS WEIGHT-BASED AND TAKEN WITH FOOD: 1000 MG IF {/= 75 KG OR 1200 MG IF } 75
     Route: 048
  5. TELAPREVIR [Suspect]
     Active Substance: TELAPREVIR
     Dosage: 2250 MG (1125 MG, 2 IN 1 D)
     Route: 065

REACTIONS (6)
  - No therapeutic response [Unknown]
  - Anaemia [Unknown]
  - Anxiety [Unknown]
  - Fatigue [Unknown]
  - Imprisonment [Unknown]
  - Depression [Unknown]
